FAERS Safety Report 6207938-3 (Version None)
Quarter: 2009Q2

REPORT INFORMATION
  Report Type: 
  Country: None (occurrence: None)
  Receive Date: 20090529
  Receipt Date: 20080702
  Transmission Date: 20091009
  Serious: No
  Sender: FDA-Public Use
  Company Number: A0729441A

PATIENT
  Age: 46 Year
  Sex: Female

DRUGS (9)
  1. VENTOLIN [Suspect]
     Indication: ASTHMA
     Route: 055
     Dates: start: 20070913
  2. AUGMENTIN '125' [Concomitant]
  3. AURALGAN [Concomitant]
     Route: 001
  4. PREDNISONE [Concomitant]
  5. SINGULAIR [Concomitant]
  6. WELLBUTRIN [Concomitant]
  7. PREVACID [Concomitant]
  8. CYMBALTA [Concomitant]
  9. LEVOXYL [Concomitant]

REACTIONS (1)
  - URINE AMPHETAMINE POSITIVE [None]
